FAERS Safety Report 6958376-7 (Version None)
Quarter: 2010Q3

REPORT INFORMATION
  Report Type: 
  Country: None (occurrence: None)
  Receive Date: 20100831
  Receipt Date: 20100819
  Transmission Date: 20110219
  Serious: Yes (Death, Other)
  Sender: FDA-Public Use
  Company Number: DE-ROCHE-649212

PATIENT

DRUGS (12)
  1. MYCOPHENOLATE MOFETIL [Suspect]
     Route: 048
  2. MYCOPHENOLATE MOFETIL [Suspect]
     Dosage: AFTER RANDOMIZATION.
     Route: 048
  3. CYCLOSPORINE [Suspect]
     Dosage: DOSE REPORTED AS 200-250 NG/ML
     Route: 048
  4. CYCLOSPORINE [Suspect]
     Dosage: CSA WAS REDUCED BY 50% AND ELIMINATED 3 DAYS LATER.
     Route: 048
  5. SIROLIMUS [Suspect]
     Dosage: DOSE REPORTED: 8-12 (-M3)5-10 (-M12) NG/ML. LOADING DOSE.
     Route: 065
  6. SIROLIMUS [Suspect]
     Route: 065
  7. METHYLPREDNISOLONE [Concomitant]
     Dosage: INTRAOPERATIVELY.
  8. METHYLPREDNISOLONE [Concomitant]
     Dosage: FOR THE FIRST TWO WEEKS AFTER TRANSPLANTATION.
  9. METHYLPREDNISOLONE [Concomitant]
     Dosage: FROM WEEK 3 TO WEEK 8.
  10. METHYLPREDNISOLONE [Concomitant]
  11. METHYLPREDNISOLONE [Concomitant]
  12. ANTILYMPHOCYTE GLOBULIN [Concomitant]
     Dosage: DRUG: ANTITHYMOCYTE GLOBULIN-F SINGLE BOLUS INDUCTION. 25 PATIENTS RECEIVED 4 MG/KG AND 173: 9 MG/KG
     Route: 042

REACTIONS (25)
  - ABDOMINAL PAIN [None]
  - ANAEMIA [None]
  - BK VIRUS INFECTION [None]
  - CARDIAC DISORDER [None]
  - CYTOMEGALOVIRUS VIRAEMIA [None]
  - DIABETES MELLITUS [None]
  - DIARRHOEA [None]
  - HEPATOBILIARY DISEASE [None]
  - HYPERLIPIDAEMIA [None]
  - IMPAIRED HEALING [None]
  - INFECTION [None]
  - INJURY [None]
  - LEUKOPENIA [None]
  - LYMPHOCELE [None]
  - MUSCULOSKELETAL DISORDER [None]
  - NERVOUS SYSTEM DISORDER [None]
  - OEDEMA [None]
  - PROCEDURAL COMPLICATION [None]
  - PULMONARY EMBOLISM [None]
  - PYREXIA [None]
  - RESPIRATORY DISORDER [None]
  - THROMBOCYTOPENIA [None]
  - TRANSPLANT REJECTION [None]
  - TREATMENT FAILURE [None]
  - URINARY TRACT INFECTION [None]
